FAERS Safety Report 10087367 (Version 1)
Quarter: 2014Q2

REPORT INFORMATION
  Report Type: Spontaneous
  Country: US (occurrence: US)
  Receive Date: 20140418
  Receipt Date: 20140418
  Transmission Date: 20141212
  Serious: No
  Sender: FDA-Public Use
  Company Number: US-PURDUE-USA-2014-0112380

PATIENT
  Sex: Female

DRUGS (1)
  1. OXYCONTIN (NDA 22-272) [Suspect]
     Indication: BACK INJURY
     Dosage: 40 MG, UNK
     Route: 048
     Dates: start: 2003

REACTIONS (2)
  - Breakthrough pain [Unknown]
  - Pain [Unknown]
